FAERS Safety Report 13344416 (Version 2)
Quarter: 2017Q4

REPORT INFORMATION
  Report Type: Spontaneous
  Country: FR (occurrence: FR)
  Receive Date: 20170317
  Receipt Date: 20171107
  Transmission Date: 20180320
  Serious: Yes (Death, Hospitalization, Other)
  Sender: FDA-Public Use
  Company Number: FR-CIPLA LTD.-2017FR04118

PATIENT

DRUGS (12)
  1. LOXAPINE. [Suspect]
     Active Substance: LOXAPINE
     Dosage: 375 MG, QD, 275+ 100 MG ; AS REQUIRED
     Route: 048
     Dates: start: 20120614
  2. MORPHINE [Suspect]
     Active Substance: MORPHINE
     Indication: ABDOMINAL PAIN
  3. TRAMADOL. [Suspect]
     Active Substance: TRAMADOL
     Indication: COLITIS ISCHAEMIC
     Dosage: 100 MG, UNK
     Route: 065
     Dates: start: 20120625
  4. TROPATEPINE [Suspect]
     Active Substance: TROPATEPINE
     Indication: BIPOLAR DISORDER
     Dosage: 10 MG, QD
     Route: 065
     Dates: start: 20120605
  5. RISPERIDONE. [Suspect]
     Active Substance: RISPERIDONE
     Indication: BIPOLAR DISORDER
     Dosage: UNK
     Route: 065
  6. DIAZEPAM. [Suspect]
     Active Substance: DIAZEPAM
     Indication: BIPOLAR DISORDER
     Dosage: 30 MG, QD
     Route: 065
     Dates: start: 20120614
  7. LOXAPINE. [Suspect]
     Active Substance: LOXAPINE
     Dosage: 100 MG, UNK
     Route: 030
     Dates: start: 20120625
  8. QUETIAPINE. [Suspect]
     Active Substance: QUETIAPINE
     Indication: BIPOLAR DISORDER
     Dosage: 600 MG/DAY
     Route: 048
     Dates: start: 20120605
  9. TRAMADOL. [Suspect]
     Active Substance: TRAMADOL
     Indication: ABDOMINAL PAIN
  10. VALPROIC ACID. [Suspect]
     Active Substance: VALPROIC ACID
     Indication: BIPOLAR DISORDER
     Dosage: 1000 MG, QD
     Route: 065
     Dates: start: 20120614
  11. LOXAPINE. [Suspect]
     Active Substance: LOXAPINE
     Indication: BIPOLAR DISORDER
     Dosage: 100MG
     Route: 048
     Dates: start: 20120614
  12. MORPHINE [Suspect]
     Active Substance: MORPHINE
     Indication: COLITIS ISCHAEMIC
     Dosage: UNK
     Route: 042
     Dates: start: 20120625

REACTIONS (22)
  - Acute kidney injury [Fatal]
  - Systemic bacterial infection [Fatal]
  - Intestinal perforation [Unknown]
  - Treatment noncompliance [Unknown]
  - Necrotising colitis [Fatal]
  - Multiple organ dysfunction syndrome [Fatal]
  - Gastric haemorrhage [Fatal]
  - Aggression [Unknown]
  - Large intestine perforation [Fatal]
  - Libido decreased [Unknown]
  - Subileus [Fatal]
  - Candida infection [Fatal]
  - Colitis ischaemic [Unknown]
  - Cardiac arrest [Fatal]
  - Septic shock [Fatal]
  - Pneumonia pseudomonal [Fatal]
  - Agitation [Unknown]
  - Systemic mycosis [Fatal]
  - Metabolic acidosis [Fatal]
  - Intestinal ischaemia [Fatal]
  - Staphylococcal bacteraemia [Fatal]
  - Erectile dysfunction [Unknown]

NARRATIVE: CASE EVENT DATE: 20120625
